FAERS Safety Report 5258161-0 (Version None)
Quarter: 2007Q1

REPORT INFORMATION
  Report Type: 
  Country: None (occurrence: None)
  Receive Date: 20070307
  Receipt Date: 20070223
  Transmission Date: 20070707
  Serious: Yes (Other)
  Sender: FDA-Public Use
  Company Number: US-PFIZER INC-2007016142

PATIENT
  Sex: Female
  Weight: 86.6 kg

DRUGS (9)
  1. CHANTIX [Suspect]
     Indication: SMOKING CESSATION THERAPY
     Dates: start: 20060801, end: 20060101
  2. PENICILLIN [Suspect]
     Indication: TOOTH ABSCESS
  3. ATENOLOL [Concomitant]
  4. HYDROCHLOROTHIAZIDE [Concomitant]
  5. VITAMIN B COMPLEX CAP [Concomitant]
  6. ACETYLSALICYLIC ACID SRT [Concomitant]
  7. VITAMINS [Concomitant]
  8. MINERALS NOS [Concomitant]
  9. HERBAL PREPARATION [Concomitant]

REACTIONS (9)
  - AGGRESSION [None]
  - ANOREXIA [None]
  - DYSPEPSIA [None]
  - EXPRESSIVE LANGUAGE DISORDER [None]
  - FUNGAL INFECTION [None]
  - POLLAKIURIA [None]
  - SWELLING [None]
  - TOOTH ABSCESS [None]
  - WEIGHT INCREASED [None]
